FAERS Safety Report 11654373 (Version 1)
Quarter: 2015Q4

REPORT INFORMATION
  Report Type: Report from Study
  Country: GB (occurrence: GB)
  Receive Date: 20151023
  Receipt Date: 20151023
  Transmission Date: 20160304
  Serious: Yes (Other)
  Sender: FDA-Public Use
  Company Number: GB-ROCHE-1648100

PATIENT
  Sex: Female
  Weight: 67 kg

DRUGS (6)
  1. METHOTREXATE [Concomitant]
     Active Substance: METHOTREXATE
     Route: 065
  2. FOLIC ACID. [Concomitant]
     Active Substance: FOLIC ACID
  3. ALENDRONATE [Concomitant]
     Active Substance: ALENDRONATE SODIUM
  4. CALCEOS [Concomitant]
     Active Substance: CALCIUM CARBONATE\CHOLECALCIFEROL
  5. PARACETAMOL [Concomitant]
     Active Substance: ACETAMINOPHEN
  6. TOCILIZUMAB [Suspect]
     Active Substance: TOCILIZUMAB
     Indication: RHEUMATOID ARTHRITIS
     Route: 058
     Dates: start: 20140909, end: 20150127

REACTIONS (12)
  - Drug ineffective [Unknown]
  - Malaise [Unknown]
  - Joint stiffness [Unknown]
  - Lower respiratory tract infection [Unknown]
  - Fatigue [Unknown]
  - Heart valve incompetence [Unknown]
  - Vasculitis [Unknown]
  - Splinter haemorrhages [Unknown]
  - Raynaud^s phenomenon [Unknown]
  - Osteoporosis [Unknown]
  - Arthralgia [Unknown]
  - Synovitis [Unknown]
